FAERS Safety Report 10520582 (Version 2)
Quarter: 2014Q4

REPORT INFORMATION
  Report Type: Spontaneous
  Country: US (occurrence: US)
  Receive Date: 20141015
  Receipt Date: 20141111
  Transmission Date: 20150528
  Serious: No
  Sender: FDA-Public Use
  Company Number: US-TEVA-515862USA

PATIENT
  Sex: Female
  Weight: 104.42 kg

DRUGS (1)
  1. PARAGARD T380A [Suspect]
     Active Substance: COPPER
     Indication: CONTRACEPTION
     Route: 015
     Dates: start: 20140408, end: 20141009

REACTIONS (2)
  - Embedded device [Recovered/Resolved]
  - Pelvic pain [Recovered/Resolved with Sequelae]
